FAERS Safety Report 8962349 (Version 1)
Quarter: 2012Q4

REPORT INFORMATION
  Report Type: Spontaneous
  Country: US (occurrence: None)
  Receive Date: 20121211
  Receipt Date: 20121211
  Transmission Date: 20130627
  Serious: Yes (Disabling)
  Sender: FDA-Public Use
  Company Number: None

PATIENT
  Age: 53 Year
  Sex: Male
  Weight: 76.2 kg

DRUGS (1)
  1. CIPROFLOXACIN [Suspect]
     Indication: PROPHYLAXIS URINARY TRACT INFECTION
     Dosage: 500 MG  1 Tablet  2x Day   
After Surgery for 6 days

REACTIONS (2)
  - Pain in extremity [None]
  - Arthralgia [None]
